FAERS Safety Report 9084065 (Version 1)
Quarter: 2013Q1

REPORT INFORMATION
  Report Type: Report from Study
  Country: US (occurrence: US)
  Receive Date: 20130131
  Receipt Date: 20130131
  Transmission Date: 20140127
  Serious: No
  Sender: FDA-Public Use
  Company Number: US-ABBOTT-12P-163-0971114-00

PATIENT
  Age: 21 None
  Sex: Female
  Weight: 65.83 kg

DRUGS (1)
  1. HUMIRA [Suspect]
     Indication: PSORIASIS
     Route: 058
     Dates: start: 201206

REACTIONS (5)
  - Injection site pruritus [Unknown]
  - Injection site bruising [Unknown]
  - Bronchitis [Recovering/Resolving]
  - Injection site pruritus [Unknown]
  - Injection site bruising [Unknown]
